FAERS Safety Report 17966267 (Version 1)
Quarter: 2020Q2

REPORT INFORMATION
  Report Type: Spontaneous
  Country: US (occurrence: US)
  Receive Date: 20200630
  Receipt Date: 20200630
  Transmission Date: 20200714
  Serious: No
  Sender: FDA-Public Use
  Company Number: US-ELI_LILLY_AND_COMPANY-US202006008202

PATIENT
  Age: 57 Year
  Sex: Female

DRUGS (4)
  1. EMGALITY [Suspect]
     Active Substance: GALCANEZUMAB-GNLM
     Indication: MIGRAINE PROPHYLAXIS
     Dosage: 120 MG, UNKNOWN
     Route: 058
     Dates: start: 20200313
  2. UBRELVY [Concomitant]
     Active Substance: UBROGEPANT
     Indication: MIGRAINE
  3. TOPIRAMATE. [Concomitant]
     Active Substance: TOPIRAMATE
     Indication: MIGRAINE PROPHYLAXIS
     Dosage: 200 MG, DAILY
  4. SUMATRIPTAN. [Concomitant]
     Active Substance: SUMATRIPTAN
     Indication: MIGRAINE
     Dosage: 100 MG, PRN

REACTIONS (4)
  - Injection site pruritus [Recovered/Resolved]
  - Injection site erythema [Recovering/Resolving]
  - Injection site swelling [Recovered/Resolved]
  - Injection site warmth [Recovered/Resolved]

NARRATIVE: CASE EVENT DATE: 20200613
